FAERS Safety Report 22958949 (Version 2)
Quarter: 2023Q4

REPORT INFORMATION
  Report Type: Report from Study
  Country: US (occurrence: US)
  Receive Date: 20230919
  Receipt Date: 20231002
  Transmission Date: 20240109
  Serious: Yes (Hospitalization)
  Sender: FDA-Public Use
  Company Number: US-KARYOPHARM-2023KPT001917

PATIENT
  Age: 83 Year
  Sex: Male
  Weight: 81.4 kg

DRUGS (16)
  1. SELINEXOR [Suspect]
     Active Substance: SELINEXOR
     Indication: Plasma cell myeloma
     Dosage: 60 MG, D 1 8, AND 15
     Route: 048
     Dates: start: 20230907, end: 20230909
  2. DARATUMUMAB [Suspect]
     Active Substance: DARATUMUMAB
     Indication: Plasma cell myeloma
     Dosage: 1800 MG, WEEKLY
     Route: 058
     Dates: start: 20230907, end: 20230909
  3. LENALIDOMIDE [Suspect]
     Active Substance: LENALIDOMIDE
     Indication: Plasma cell myeloma
     Dosage: 15 MG, QOD
     Route: 048
     Dates: start: 20230907, end: 20230909
  4. DEXAMETHASONE [Suspect]
     Active Substance: DEXAMETHASONE
     Indication: Plasma cell myeloma
     Dosage: 20 MG, WEEKLY
     Route: 048
     Dates: start: 20230907, end: 20230909
  5. ASPIRIN [Concomitant]
     Active Substance: ASPIRIN
     Indication: Prophylaxis
     Dosage: 81 MG, QD
     Dates: start: 2003
  6. ALPHA LIPOIC ACID [Concomitant]
     Active Substance: .ALPHA.-LIPOIC ACID
     Indication: Nerve injury
     Dosage: 600 MG, QD
     Dates: start: 2020
  7. DORZOLAMIDE/TIMOLOL ACTAVIS [Concomitant]
     Indication: Glaucoma
     Dosage: 22.3 MG, BID
     Dates: start: 2021
  8. FARXIGA [Concomitant]
     Active Substance: DAPAGLIFLOZIN PROPANEDIOL
     Indication: Renal failure
     Dosage: 5 MG, QD
     Dates: start: 20230727
  9. FOLIC ACID [Concomitant]
     Active Substance: FOLIC ACID
     Indication: Supplementation therapy
     Dosage: 1000 MG, QD
     Dates: start: 2003
  10. GLIPIZIDE [Concomitant]
     Active Substance: GLIPIZIDE
     Indication: Diabetes mellitus
     Dosage: 10 MG, QD
     Dates: start: 2008
  11. LANTUS [Concomitant]
     Active Substance: INSULIN GLARGINE
     Indication: Diabetes mellitus
     Dosage: 14 U/ML, QD
     Dates: start: 2008
  12. ONDANSETRON [Concomitant]
     Active Substance: ONDANSETRON
  13. OLANZAPINE [Concomitant]
     Active Substance: OLANZAPINE
  14. MONTELUKAST [Concomitant]
     Active Substance: MONTELUKAST SODIUM
  15. ACYCLOVIR [Concomitant]
     Active Substance: ACYCLOVIR
  16. COMPAZINE [Concomitant]
     Active Substance: PROCHLORPERAZINE MALEATE

REACTIONS (1)
  - Acute respiratory distress syndrome [Not Recovered/Not Resolved]

NARRATIVE: CASE EVENT DATE: 20230909
